FAERS Safety Report 22226084 (Version 3)
Quarter: 2025Q3

REPORT INFORMATION
  Report Type: Spontaneous
  Country: EU (occurrence: EU)
  Receive Date: 20230419
  Receipt Date: 20250721
  Transmission Date: 20251020
  Serious: Yes (Death, Life-Threatening, Hospitalization, Other)
  Sender: STRIDES
  Company Number: None

PATIENT
  Age: 46 Year
  Sex: Male

DRUGS (3)
  1. DOXYCYCLINE [Suspect]
     Active Substance: DOXYCYCLINE
     Indication: Brucellosis
     Route: 065
  2. CIPROFLOXACIN [Suspect]
     Active Substance: CIPROFLOXACIN
     Indication: Brucellosis
     Route: 065
  3. AMOXICILLIN\CLAVULANIC ACID [Concomitant]
     Active Substance: AMOXICILLIN\CLAVULANIC ACID
     Indication: Pyrexia
     Route: 065

REACTIONS (5)
  - Hepatotoxicity [Fatal]
  - Hepatic encephalopathy [Fatal]
  - Haemorrhage intracranial [Fatal]
  - Disseminated intravascular coagulation [Fatal]
  - Hepatic failure [Fatal]
